FAERS Safety Report 10018784 (Version 1)
Quarter: 2014Q1

REPORT INFORMATION
  Report Type: Spontaneous
  Country: US (occurrence: None)
  Receive Date: 20140314
  Receipt Date: 20140314
  Transmission Date: 20141002
  Serious: Yes (Disabling)
  Sender: FDA-Public Use
  Company Number: None

PATIENT
  Age: 71 Year
  Sex: Female
  Weight: 62.6 kg

DRUGS (1)
  1. DULOXETINE [Suspect]
     Indication: DEPRESSION
     Dosage: 1 ONCE DAILY
     Route: 048
     Dates: start: 20131231, end: 20140228

REACTIONS (5)
  - Product substitution issue [None]
  - Lethargy [None]
  - Arthralgia [None]
  - Myalgia [None]
  - Depression [None]
